FAERS Safety Report 13174293 (Version 1)
Quarter: 2017Q1

REPORT INFORMATION
  Report Type: Report from Study
  Country: US (occurrence: US)
  Receive Date: 20170131
  Receipt Date: 20170131
  Transmission Date: 20170428
  Serious: No
  Sender: FDA-Public Use
  Company Number: US-AMGEN-USASL2016161884

PATIENT
  Age: 86 Year
  Sex: Male

DRUGS (2)
  1. IMLYGIC [Suspect]
     Active Substance: TALIMOGENE LAHERPAREPVEC
     Dosage: UNK UNK, Q2WK (2ND INJ 3 WKS AFTER 1ST INJ, SUBSEQUENT INJ Q 2 WKS)
     Route: 065
  2. IMLYGIC [Suspect]
     Active Substance: TALIMOGENE LAHERPAREPVEC
     Indication: MALIGNANT MELANOMA
     Dosage: UNK UNK, UNK (2ND INJ 3 WKS AFTER 1ST INJ)
     Route: 065

REACTIONS (1)
  - Injection site pain [Unknown]
